FAERS Safety Report 20785114 (Version 1)
Quarter: 2022Q2

REPORT INFORMATION
  Report Type: Spontaneous
  Country: US (occurrence: None)
  Receive Date: 20220503
  Receipt Date: 20220503
  Transmission Date: 20220721
  Serious: Yes (Life-Threatening, Hospitalization, Other)
  Sender: FDA-Public Use
  Company Number: None

PATIENT
  Age: 75 Year
  Sex: Male
  Weight: 67.4 kg

DRUGS (1)
  1. PAZOPANIB [Suspect]
     Active Substance: PAZOPANIB
     Dosage: FREQUENCY : DAILY;?
     Route: 048

REACTIONS (2)
  - Dyspnoea [None]
  - Pneumothorax [None]

NARRATIVE: CASE EVENT DATE: 20220416
